FAERS Safety Report 21387950 (Version 1)
Quarter: 2022Q3

REPORT INFORMATION
  Report Type: Spontaneous
  Country: CA (occurrence: None)
  Receive Date: 20220928
  Receipt Date: 20220928
  Transmission Date: 20221027
  Serious: Yes (Life-Threatening, Hospitalization)
  Sender: FDA-Public Use
  Company Number: 2022A329984

PATIENT
  Age: 64 Year
  Sex: Male
  Weight: 89 kg

DRUGS (8)
  1. DAPAGLIFLOZIN [Suspect]
     Active Substance: DAPAGLIFLOZIN
     Indication: Product used for unknown indication
     Route: 048
  2. RAMIPRIL [Suspect]
     Active Substance: RAMIPRIL
     Indication: Hypertension
     Route: 048
  3. ATENOLOL [Suspect]
     Active Substance: ATENOLOL
     Indication: Hypertension
     Route: 048
  4. METFORMIN [Suspect]
     Active Substance: METFORMIN HYDROCHLORIDE
     Indication: Diabetes mellitus
     Route: 065
  5. APIDRA [Concomitant]
     Active Substance: INSULIN GLULISINE
  6. INSULIN NOS [Concomitant]
     Active Substance: INSULIN NOS
  7. ROSUVASTATIN [Concomitant]
     Active Substance: ROSUVASTATIN
  8. DULAGLUTIDE [Concomitant]
     Active Substance: DULAGLUTIDE

REACTIONS (3)
  - Hyperglycaemia [Recovered/Resolved with Sequelae]
  - Metabolic acidosis [Recovered/Resolved with Sequelae]
  - Pulmonary oedema [Recovered/Resolved with Sequelae]
